FAERS Safety Report 7819764-X (Version None)
Quarter: 2011Q4

REPORT INFORMATION
  Report Type: 
  Country: None (occurrence: None)
  Receive Date: 20111018
  Receipt Date: 20110216
  Transmission Date: 20120403
  Serious: No
  Sender: FDA-Public Use
  Company Number: US-ASTRAZENECA-2007UW27423

PATIENT
  Age: 78 Year
  Sex: Male
  Weight: 81.6 kg

DRUGS (8)
  1. SYMBICORT [Suspect]
     Indication: LUNG DISORDER
     Dosage: 80/4.5 MCG, TWO PUFFS, TWO TIMES A DAY.
     Route: 055
     Dates: start: 20071101
  2. DILACOR XR [Concomitant]
  3. ASPIRIN [Concomitant]
  4. SYMBICORT [Suspect]
     Indication: CHRONIC OBSTRUCTIVE PULMONARY DISEASE
     Dosage: 80/4.5 MCG, TWO PUFFS, TWO TIMES A DAY.
     Route: 055
     Dates: start: 20071101
  5. FISH OIL [Concomitant]
  6. VYTORIN [Concomitant]
  7. SYMBICORT [Suspect]
     Dosage: 80/4.5, MCG, TWO PUFFS IN THE EVENING.
     Route: 055
     Dates: start: 20100601
  8. SYMBICORT [Suspect]
     Dosage: 80/4.5, MCG, TWO PUFFS IN THE EVENING.
     Route: 055
     Dates: start: 20100601

REACTIONS (5)
  - DRUG INEFFECTIVE [None]
  - DRY THROAT [None]
  - DYSPNOEA [None]
  - DYSPHONIA [None]
  - OROPHARYNGEAL PAIN [None]
